FAERS Safety Report 16756322 (Version 6)
Quarter: 2022Q4

REPORT INFORMATION
  Report Type: Report from Study
  Country: BR (occurrence: None)
  Receive Date: 20190829
  Receipt Date: 20221115
  Transmission Date: 20230113
  Serious: Yes (Hospitalization)
  Sender: FDA-Public Use
  Company Number: BR-ROCHE-2395900

PATIENT
  Age: 57 Year
  Sex: Male
  Weight: 71.1 kg

DRUGS (25)
  1. ATEZOLIZUMAB [Suspect]
     Active Substance: ATEZOLIZUMAB
     Indication: Renal cell carcinoma
     Dosage: MOST RECENT DOSE ON 24/APR/2019 AT 13:49
     Route: 041
     Dates: start: 20180613
  2. ALLOPURINOL [Concomitant]
     Active Substance: ALLOPURINOL
     Indication: Gouty arthritis
     Route: 048
     Dates: start: 2013
  3. LOSARTAN [Concomitant]
     Active Substance: LOSARTAN
     Indication: Hypertension
     Route: 048
     Dates: start: 2013
  4. FLUOXETINE [Concomitant]
     Active Substance: FLUOXETINE HYDROCHLORIDE
     Indication: Depression
     Route: 048
     Dates: start: 20180830
  5. MOTILIUM [Concomitant]
     Active Substance: DOMPERIDONE
     Indication: Tracheobronchitis
     Route: 048
     Dates: start: 20181108
  6. PURAN [Concomitant]
     Active Substance: LEVOTHYROXINE SODIUM
     Indication: Hypothyroidism
     Route: 048
     Dates: start: 20190404
  7. PREDNISOLONE [Concomitant]
     Active Substance: PREDNISOLONE
     Route: 048
     Dates: start: 20190817, end: 20190821
  8. LORATADINE [Concomitant]
     Active Substance: LORATADINE
     Indication: Rash
     Route: 048
     Dates: start: 20190731, end: 20190809
  9. SALINE [Concomitant]
     Active Substance: SODIUM CHLORIDE
     Indication: Dehydration
     Route: 042
     Dates: start: 20190826, end: 20190830
  10. SALINE [Concomitant]
     Active Substance: SODIUM CHLORIDE
     Dates: start: 20190827, end: 20190828
  11. FLUTICASONE [Concomitant]
     Active Substance: FLUTICASONE
     Indication: Nasal obstruction
     Route: 055
     Dates: start: 20190826, end: 20190830
  12. SODIUM BICARBONATE [Concomitant]
     Active Substance: SODIUM BICARBONATE
     Indication: Acute kidney injury
     Route: 048
     Dates: start: 20190826, end: 20190829
  13. SODIUM BICARBONATE [Concomitant]
     Active Substance: SODIUM BICARBONATE
     Dates: start: 20190827, end: 20190828
  14. BETAMETHASONE VALERATE [Concomitant]
     Active Substance: BETAMETHASONE VALERATE
     Route: 061
     Dates: start: 20190827
  15. LINAGLIPTIN [Concomitant]
     Active Substance: LINAGLIPTIN
     Indication: Hyperglycaemia
     Route: 048
     Dates: start: 20190827
  16. TRESIBA [Concomitant]
     Active Substance: INSULIN DEGLUDEC
     Indication: Hyperglycaemia
     Route: 058
     Dates: start: 20190827
  17. BACITRACIN ZINC\NEOMYCIN SULFATE [Concomitant]
     Active Substance: BACITRACIN ZINC\NEOMYCIN SULFATE
     Indication: Balanoposthitis
     Route: 061
     Dates: start: 20190828
  18. METFORMIN HYDROCHLORIDE [Concomitant]
     Active Substance: METFORMIN HYDROCHLORIDE
     Indication: Hyperglycaemia
     Route: 048
     Dates: start: 20190829, end: 20210521
  19. DEXTROSE [Concomitant]
     Active Substance: DEXTROSE
     Indication: Diabetes mellitus
     Route: 048
     Dates: start: 20190827, end: 20190829
  20. PROCTYL (BRAZIL) [Concomitant]
     Indication: Haemorrhoids
     Route: 054
     Dates: start: 20191030, end: 20191031
  21. INSULIN NOS [Concomitant]
     Active Substance: INSULIN NOS
     Indication: Hyperglycaemia
     Route: 058
     Dates: start: 20190828, end: 20190828
  22. INSULIN NOS [Concomitant]
     Active Substance: INSULIN NOS
     Route: 058
     Dates: start: 20190829, end: 20190829
  23. NESINA [Concomitant]
     Active Substance: ALOGLIPTIN BENZOATE
     Indication: Hyperglycaemia
     Route: 048
     Dates: start: 20190830
  24. BASAGLAR [Concomitant]
     Active Substance: INSULIN GLARGINE
     Indication: Hyperglycaemia
     Route: 058
     Dates: start: 20190831
  25. INSULIN NOS [Concomitant]
     Active Substance: INSULIN NOS
     Indication: Hyperglycaemia
     Route: 058
     Dates: start: 20190826, end: 20190827

REACTIONS (1)
  - Hyperglycaemia [Recovering/Resolving]

NARRATIVE: CASE EVENT DATE: 20190826
